FAERS Safety Report 18114711 (Version 1)
Quarter: 2020Q3

REPORT INFORMATION
  Report Type: Spontaneous
  Country: GR (occurrence: GR)
  Receive Date: 20200805
  Receipt Date: 20200805
  Transmission Date: 20201103
  Serious: Yes (Hospitalization)
  Sender: FDA-Public Use
  Company Number: GR-TEVA-2020-GR-1806917

PATIENT
  Sex: Female
  Weight: 60 kg

DRUGS (34)
  1. DOXORUBICIN [Suspect]
     Active Substance: DOXORUBICIN
     Route: 058
  2. ESHAP [Suspect]
     Active Substance: CISPLATIN\CYTARABINE\ETOPOSIDE\METHYLPREDNISOLONE (ESHAP)
     Indication: DIFFUSE LARGE B-CELL LYMPHOMA
     Dosage: 2 CYCLES
     Route: 065
     Dates: start: 20191113, end: 20191223
  3. RITUXIMAB. [Suspect]
     Active Substance: RITUXIMAB
     Dosage: 2 CYCLE
     Route: 042
     Dates: start: 20191113, end: 20191223
  4. ARACYTINE [Suspect]
     Active Substance: CYTARABINE
     Dosage: 2 CYCLES,3G
     Route: 042
     Dates: start: 20191123, end: 20200113
  5. NORVASC [Suspect]
     Active Substance: AMLODIPINE BESYLATE
     Dosage: 1 CYCLE, 5MG
     Route: 048
     Dates: start: 20190515, end: 20190516
  6. CHOP [Suspect]
     Active Substance: CYCLOPHOSPHAMIDE\DOXORUBICIN\PREDNISONE\VINCRISTINE
     Indication: DIFFUSE LARGE B-CELL LYMPHOMA
     Dosage: 8 CYCLES
     Route: 065
     Dates: start: 20190513, end: 20191013
  7. LOSEC [Suspect]
     Active Substance: OMEPRAZOLE
     Indication: NON-HODGKIN^S LYMPHOMA
     Dosage: 1 CYCLES TWICE
     Route: 042
     Dates: start: 20191223, end: 20200113
  8. VALTREX [Suspect]
     Active Substance: VALACYCLOVIR HYDROCHLORIDE
     Indication: NON-HODGKIN^S LYMPHOMA
     Dosage: 1 CYCLE, 500G
     Route: 048
     Dates: start: 20200108, end: 20200113
  9. MABTHERA [Suspect]
     Active Substance: RITUXIMAB
     Dosage: 6 CYCLES,1400MG
     Route: 058
     Dates: start: 20190625, end: 20191009
  10. FILGRASTIM [Suspect]
     Active Substance: FILGRASTIM
     Indication: LEUKOPENIA
     Route: 058
     Dates: start: 20190523, end: 20200117
  11. ALDACTONE [Suspect]
     Active Substance: SPIRONOLACTONE
     Dosage: 1 CYCLE, 100MG
     Route: 048
     Dates: start: 20200105, end: 20200112
  12. VEPESID [Suspect]
     Active Substance: ETOPOSIDE
     Dosage: 2 CYCLE, 90MG
     Route: 042
     Dates: start: 20191119, end: 20200113
  13. ARACYTINE [Suspect]
     Active Substance: CYTARABINE
     Indication: NON-HODGKIN^S LYMPHOMA
     Route: 058
  14. ALDACTONE [Suspect]
     Active Substance: SPIRONOLACTONE
     Route: 042
  15. NORVASC [Suspect]
     Active Substance: AMLODIPINE BESYLATE
     Route: 058
  16. LASIX [Suspect]
     Active Substance: FUROSEMIDE
     Indication: NON-HODGKIN^S LYMPHOMA
     Dosage: 1 CYCLE
     Route: 042
     Dates: start: 20200110, end: 20200113
  17. HUMAN ALBUMIN [Suspect]
     Active Substance: ALBUMIN HUMAN
     Indication: NON-HODGKIN^S LYMPHOMA
     Dosage: 1 CYLCE 50MG X2, UNIT DOSE 50MG
     Route: 042
     Dates: start: 20200110, end: 20200113
  18. CUBICIN [Suspect]
     Active Substance: DAPTOMYCIN
     Indication: NON-HODGKIN^S LYMPHOMA
     Dosage: 1 CYCLE, 350MG
     Route: 042
     Dates: start: 20200102, end: 20200113
  19. VALTREX [Suspect]
     Active Substance: VALACYCLOVIR HYDROCHLORIDE
     Route: 042
  20. VALTREX [Suspect]
     Active Substance: VALACYCLOVIR HYDROCHLORIDE
     Route: 058
  21. MEROPENEM. [Suspect]
     Active Substance: MEROPENEM
     Indication: NON-HODGKIN^S LYMPHOMA
     Dosage: 1 CYCLE 2GX3, UNIT DOSE: 2G
     Route: 042
     Dates: start: 20200103, end: 20200113
  22. VEPESID [Suspect]
     Active Substance: ETOPOSIDE
     Route: 058
  23. CISPLATIN. [Suspect]
     Active Substance: CISPLATIN
     Dosage: 2 CYCLES, 38MG
     Route: 042
     Dates: start: 20191119, end: 20200113
  24. VALTREX [Suspect]
     Active Substance: VALACYCLOVIR HYDROCHLORIDE
     Dosage: 500MG
     Route: 048
     Dates: start: 20190513, end: 20190516
  25. CLORFENAMINA [CHLORPHENAMINE] [Suspect]
     Active Substance: CHLORPHENIRAMINE
     Indication: NON-HODGKIN^S LYMPHOMA
     Dosage: 1 CYCLE
     Route: 048
     Dates: start: 20200110, end: 20200112
  26. MABTHERA [Suspect]
     Active Substance: RITUXIMAB
     Dosage: 1 CYCLE, 1400MG
     Route: 058
     Dates: start: 20191113, end: 20191210
  27. DOXORUBICIN [Suspect]
     Active Substance: DOXORUBICIN
     Dosage: 8 CYCLES, 75MG
     Route: 042
     Dates: start: 20190513, end: 20191009
  28. EPOETIN [Suspect]
     Active Substance: ERYTHROPOIETIN
     Indication: ANAEMIA
     Dosage: 1 CYCLE
     Route: 058
     Dates: start: 20190523, end: 20200124
  29. CLORFENAMINA [CHLORPHENAMINE] [Suspect]
     Active Substance: CHLORPHENIRAMINE
     Route: 042
  30. CISPLATIN. [Suspect]
     Active Substance: CISPLATIN
     Route: 058
  31. RITUXIMAB/VORHYALURONIDASE ALFA [Suspect]
     Active Substance: HYALURONIDASE (HUMAN RECOMBINANT)\RITUXIMAB
     Indication: DIFFUSE LARGE B-CELL LYMPHOMA
     Dosage: 3 CYCLES
     Route: 058
     Dates: start: 20190513, end: 20190625
  32. MABTHERA [Suspect]
     Active Substance: RITUXIMAB
     Indication: NON-HODGKIN^S LYMPHOMA
     Dosage: 1 CYCLE, 650MG
     Route: 042
     Dates: start: 20191222, end: 20200113
  33. RITUXIMAB. [Suspect]
     Active Substance: RITUXIMAB
     Indication: DIFFUSE LARGE B-CELL LYMPHOMA
     Dosage: 8 CYCLES
     Route: 042
     Dates: start: 20190513, end: 20191013
  34. CANCIDAS [Suspect]
     Active Substance: CASPOFUNGIN ACETATE
     Indication: NON-HODGKIN^S LYMPHOMA
     Dosage: 50MG
     Route: 042
     Dates: start: 20200105, end: 20200113

REACTIONS (2)
  - Diffuse large B-cell lymphoma refractory [Unknown]
  - Disease progression [Unknown]
